FAERS Safety Report 16569853 (Version 3)
Quarter: 2019Q3

REPORT INFORMATION
  Report Type: Report from Study
  Country: US (occurrence: US)
  Receive Date: 20190715
  Receipt Date: 20190916
  Transmission Date: 20191004
  Serious: Yes (Other)
  Sender: FDA-Public Use
  Company Number: US-AMGEN-USASL2019091188

PATIENT
  Age: 59 Year
  Sex: Male

DRUGS (1)
  1. ENBREL [Suspect]
     Active Substance: ETANERCEPT
     Indication: RHEUMATOID ARTHRITIS
     Dosage: 50 MILLIGRAM, QWK
     Route: 065

REACTIONS (5)
  - Tinea cruris [Not Recovered/Not Resolved]
  - Diverticulitis [Unknown]
  - Abscess intestinal [Unknown]
  - Injection site induration [Unknown]
  - Tinea pedis [Unknown]

NARRATIVE: CASE EVENT DATE: 2018
